FAERS Safety Report 6651819-8 (Version None)
Quarter: 2010Q1

REPORT INFORMATION
  Report Type: 
  Country: None (occurrence: None)
  Receive Date: 20100325
  Receipt Date: 20100317
  Transmission Date: 20100710
  Serious: Yes (Death)
  Sender: FDA-Public Use
  Company Number: US-PFIZER INC-2009309834

PATIENT
  Age: 76 Year
  Sex: Male
  Weight: 104.31 kg

DRUGS (2)
  1. REVATIO [Suspect]
     Indication: PULMONARY HYPERTENSION
     Dosage: 20 MG, 3X/DAY
     Dates: start: 20091001
  2. TRACLEER [Suspect]
     Dosage: 125 MG, 1X/DAY

REACTIONS (1)
  - DEATH [None]
